FAERS Safety Report 9861730 (Version 2)
Quarter: 2014Q1

REPORT INFORMATION
  Report Type: Spontaneous
  Country: GB (occurrence: GB)
  Receive Date: 20140203
  Receipt Date: 20140203
  Transmission Date: 20141002
  Serious: Yes (Life-Threatening, Hospitalization)
  Sender: FDA-Public Use
  Company Number: GB-ACCORD-012141

PATIENT
  Age: 27 Year
  Sex: Male
  Weight: 79 kg

DRUGS (10)
  1. LAMOTRIGINE [Concomitant]
     Dates: start: 20130927
  2. TOPIRAMATE [Suspect]
     Indication: PRODUCT USED FOR UNKNOWN INDICATION
     Dates: start: 20120116
  3. OMEPRAZOLE [Concomitant]
     Dates: start: 20120104
  4. VITAMIN-B-KOMPLEX STANDARD [Concomitant]
     Dates: start: 20111115, end: 20111213
  5. FLUTICASONE [Concomitant]
     Dates: start: 20130927, end: 20131004
  6. NAPROXEN [Concomitant]
     Dates: start: 20111115, end: 20111213
  7. GABAPENTIN [Concomitant]
     Dates: start: 20111003, end: 20111222
  8. PREGABALIN [Concomitant]
     Dates: start: 20130816
  9. DICLOFENAC [Concomitant]
     Dates: start: 20131125, end: 20131209
  10. ZOPICLONE [Concomitant]
     Dates: start: 20130920, end: 20131018

REACTIONS (5)
  - Aggression [Unknown]
  - Intentional overdose [Unknown]
  - Bipolar I disorder [Not Recovered/Not Resolved]
  - Suicide attempt [Unknown]
  - Mood altered [Unknown]
